FAERS Safety Report 6676857-0 (Version None)
Quarter: 2010Q1

REPORT INFORMATION
  Report Type: 
  Country: None (occurrence: None)
  Receive Date: 20100331
  Receipt Date: 20100318
  Transmission Date: 20100710
  Serious: No
  Sender: FDA-Public Use
  Company Number: 2010-00345

PATIENT
  Sex: Male

DRUGS (1)
  1. ZICAM COLD REMEDY NASAL GEL [Suspect]
     Dosage: AS DIRECTED
     Route: 045
     Dates: start: 20060101, end: 20090101

REACTIONS (2)
  - AGEUSIA [None]
  - ANOSMIA [None]
